FAERS Safety Report 4714692-0 (Version None)
Quarter: 2005Q3

REPORT INFORMATION
  Report Type: 
  Country: None (occurrence: None)
  Receive Date: 20050714
  Receipt Date: 20050714
  Transmission Date: 20060218
  Serious: Yes (Hospitalization)
  Sender: FDA-Public Use
  Company Number: None

PATIENT
  Sex: Male
  Weight: 74.8435 kg

DRUGS (1)
  1. HALOPERIDOL [Suspect]
     Dosage: IV
     Route: 042
     Dates: start: 20050528, end: 20050531

REACTIONS (3)
  - ELECTROCARDIOGRAM QT PROLONGED [None]
  - NEUROLEPTIC MALIGNANT SYNDROME [None]
  - TORSADE DE POINTES [None]
